FAERS Safety Report 7953996-5 (Version None)
Quarter: 2011Q4

REPORT INFORMATION
  Report Type: 
  Country: None (occurrence: None)
  Receive Date: 20111202
  Receipt Date: 20111128
  Transmission Date: 20120403
  Serious: Yes (Hospitalization)
  Sender: FDA-Public Use
  Company Number: IT-ABBOTT-11P-083-0874149-00

PATIENT
  Age: 21 Year
  Sex: Male

DRUGS (6)
  1. BECLOMETHASONE DIPROPIONATE [Concomitant]
     Indication: PRODUCT USED FOR UNKNOWN INDICATION
  2. RAMIPRIL [Concomitant]
     Indication: PRODUCT USED FOR UNKNOWN INDICATION
  3. DEPAKENE [Suspect]
     Indication: SUICIDE ATTEMPT
     Dosage: 40 DOSAGE FORMS TOTAL
     Route: 048
     Dates: start: 20111102, end: 20111102
  4. DELORAZEPAM [Suspect]
     Indication: SUICIDE ATTEMPT
     Dosage: 20 DOSAGE FORMS TOTAL
     Route: 048
     Dates: start: 20111102, end: 20111102
  5. SINGULAIR [Concomitant]
     Indication: PRODUCT USED FOR UNKNOWN INDICATION
  6. BUDESONIDE [Concomitant]
     Indication: PRODUCT USED FOR UNKNOWN INDICATION

REACTIONS (4)
  - COMA [None]
  - SUICIDE ATTEMPT [None]
  - MULTIPLE DRUG OVERDOSE INTENTIONAL [None]
  - TOXICITY TO VARIOUS AGENTS [None]
